FAERS Safety Report 8220166-5 (Version None)
Quarter: 2012Q1

REPORT INFORMATION
  Report Type: 
  Country: None (occurrence: None)
  Receive Date: 20120301
  Receipt Date: 20111220
  Transmission Date: 20120608
  Serious: Yes (Other)
  Sender: FDA-Public Use
  Company Number: 314516USA

PATIENT
  Sex: Male

DRUGS (1)
  1. BUPRENORPHINE [Suspect]

REACTIONS (3)
  - SWELLING FACE [None]
  - LOCAL SWELLING [None]
  - URTICARIA [None]
